FAERS Safety Report 15629807 (Version 1)
Quarter: 2018Q4

REPORT INFORMATION
  Report Type: Spontaneous
  Country: US (occurrence: US)
  Receive Date: 20181117
  Receipt Date: 20181117
  Transmission Date: 20190205
  Serious: No
  Sender: FDA-Public Use
  Company Number: US-AMGEN-USASP2018159959

PATIENT
  Age: 54 Year
  Sex: Female

DRUGS (2)
  1. CALCIUM [Concomitant]
     Active Substance: CALCIUM
     Dosage: UNK
  2. PROLIA [Suspect]
     Active Substance: DENOSUMAB
     Indication: OSTEOPOROSIS
     Dosage: UNK
     Route: 030

REACTIONS (4)
  - Pain in extremity [Recovering/Resolving]
  - Incorrect route of product administration [Unknown]
  - Back pain [Recovering/Resolving]
  - Hypoaesthesia [Recovered/Resolved]
